FAERS Safety Report 4446086-X (Version None)
Quarter: 2004Q3

REPORT INFORMATION
  Report Type: 
  Country: None (occurrence: None)
  Receive Date: 20040903
  Receipt Date: 20040825
  Transmission Date: 20050211
  Serious: Yes (Hospitalization)
  Sender: FDA-Public Use
  Company Number: 2004059903

PATIENT
  Age: 57 Year
  Sex: Female

DRUGS (6)
  1. LIPITOR [Suspect]
     Indication: ILL-DEFINED DISORDER
  2. GLIPIZIDE [Concomitant]
  3. METFORMIN HCL [Concomitant]
  4. CLONAZEPAM [Concomitant]
  5. AMITRIPTYLINE HYDROCHLORIDE [Concomitant]
  6. CLONIDINE HCL [Concomitant]

REACTIONS (3)
  - BLISTER [None]
  - TRANSIENT ISCHAEMIC ATTACK [None]
  - URTICARIA [None]
